FAERS Safety Report 20747985 (Version 1)
Quarter: 2022Q2

REPORT INFORMATION
  Report Type: Report from Study
  Country: US (occurrence: US)
  Receive Date: 20220425
  Receipt Date: 20220425
  Transmission Date: 20220721
  Serious: Yes (Hospitalization, Other)
  Sender: FDA-Public Use
  Company Number: US-ABBVIE-22K-163-4369608-00

PATIENT
  Age: 60 Year
  Sex: Male

DRUGS (1)
  1. SKYRIZI [Suspect]
     Active Substance: RISANKIZUMAB-RZAA
     Indication: Psoriasis
     Dosage: OTHER
     Route: 058
     Dates: start: 20220118

REACTIONS (3)
  - Prostate cancer stage IV [Unknown]
  - Candida infection [Unknown]
  - Anal abscess [Unknown]

NARRATIVE: CASE EVENT DATE: 20220215
